FAERS Safety Report 11391971 (Version 2)
Quarter: 2015Q4

REPORT INFORMATION
  Report Type: Spontaneous
  Country: BR (occurrence: BR)
  Receive Date: 20150818
  Receipt Date: 20151021
  Transmission Date: 20160304
  Serious: Yes (Other)
  Sender: FDA-Public Use
  Company Number: BR-PFIZER INC-2015269085

PATIENT
  Age: 72 Year
  Sex: Female
  Weight: 58 kg

DRUGS (6)
  1. EXODUS [Concomitant]
     Active Substance: ESCITALOPRAM OXALATE
     Indication: ANTIDEPRESSANT THERAPY
     Dosage: 1 TABLET (UNSPECIFIED DOSE), DAILY
     Dates: start: 2010
  2. FRONTAL [Suspect]
     Active Substance: ALPRAZOLAM
     Indication: ANXIETY
     Dosage: ONE TABLET (2 MG), DAILY
     Route: 048
     Dates: start: 2010
  3. FRONTAL [Suspect]
     Active Substance: ALPRAZOLAM
     Indication: EMOTIONAL DISORDER
  4. FRONTAL [Suspect]
     Active Substance: ALPRAZOLAM
     Indication: PANIC DISORDER
  5. DONAREN [Concomitant]
     Active Substance: TRAZODONE HYDROCHLORIDE
     Indication: ANXIETY
     Dosage: 2 TABLETS (UNSPECIFIED DOSE), DAILY
     Dates: start: 2013
  6. QUESTRAN [Concomitant]
     Active Substance: CHOLESTYRAMINE
     Indication: ANTIDEPRESSANT THERAPY
     Dosage: 1 TABLET (UNSPECIFIED DOSE), DAILY
     Dates: start: 2010

REACTIONS (14)
  - Drug ineffective [Not Recovered/Not Resolved]
  - Muscular weakness [Unknown]
  - Abdominal discomfort [Unknown]
  - Fear [Unknown]
  - Hypertension [Unknown]
  - Blood pressure abnormal [Recovering/Resolving]
  - Nervousness [Unknown]
  - Abasia [Recovered/Resolved]
  - Insomnia [Unknown]
  - Myocardial infarction [Unknown]
  - Eating disorder [Unknown]
  - Hepatic steatosis [Unknown]
  - Arrhythmia [Unknown]
  - Dyslipidaemia [Unknown]
